FAERS Safety Report 17888525 (Version 1)
Quarter: 2020Q2

REPORT INFORMATION
  Report Type: Spontaneous
  Country: US (occurrence: US)
  Receive Date: 20200611
  Receipt Date: 20200611
  Transmission Date: 20200714
  Serious: No
  Sender: FDA-Public Use
  Company Number: None

PATIENT
  Sex: Female

DRUGS (4)
  1. SIMPONI [Suspect]
     Active Substance: GOLIMUMAB
     Indication: RHEUMATOID ARTHRITIS
     Route: 058
     Dates: start: 20161005
  2. WATER PILLS [Concomitant]
     Active Substance: UNSPECIFIED INGREDIENT
  3. PROLIA [Concomitant]
     Active Substance: DENOSUMAB
  4. CALCIUM [Concomitant]
     Active Substance: CALCIUM

REACTIONS (2)
  - Hip fracture [None]
  - Hepatic cirrhosis [None]
